FAERS Safety Report 8568176-2 (Version None)
Quarter: 2012Q3

REPORT INFORMATION
  Report Type: 
  Country: None (occurrence: None)
  Receive Date: 20120803
  Receipt Date: 20120712
  Transmission Date: 20120928
  Serious: No
  Sender: FDA-Public Use
  Company Number: US-ABBOTT-12P-163-0955374-00

PATIENT
  Sex: Male

DRUGS (5)
  1. CRESTOR [Concomitant]
     Indication: PRODUCT USED FOR UNKNOWN INDICATION
     Dosage: AT BEDTIME
     Route: 048
  2. VITAMIN D [Concomitant]
     Indication: PRODUCT USED FOR UNKNOWN INDICATION
     Dosage: EVERY WEEK
     Route: 048
  3. ASPIRIN [Concomitant]
     Indication: PRODUCT USED FOR UNKNOWN INDICATION
     Dosage: AT BEDTIME
     Route: 048
  4. CRESTOR [Concomitant]
     Dosage: ONE EVERY OTHER DAY
     Route: 048
  5. NIASPAN [Suspect]
     Indication: HIGH DENSITY LIPOPROTEIN DECREASED
     Dosage: 2 TABLETS AT BEDTIME
     Route: 048
     Dates: start: 20110101

REACTIONS (3)
  - DYSURIA [None]
  - ARTHRALGIA [None]
  - FLUSHING [None]
